FAERS Safety Report 7851056-5 (Version None)
Quarter: 2011Q4

REPORT INFORMATION
  Report Type: 
  Country: None (occurrence: None)
  Receive Date: 20111026
  Receipt Date: 20111021
  Transmission Date: 20120403
  Serious: No
  Sender: FDA-Public Use
  Company Number: US-TEVA-304955USA

PATIENT
  Sex: Male
  Weight: 36.774 kg

DRUGS (4)
  1. PROAIR HFA [Suspect]
     Indication: COUGH
  2. PROAIR HFA [Suspect]
     Indication: ASTHMA
     Dosage: 360 MICROGRAM;
     Route: 055
  3. FLUTICASONE PROPIONATE [Concomitant]
     Indication: ASTHMA
     Dosage: 1 PUFF
     Route: 055
  4. FLUTICASONE PROPIONATE [Concomitant]
     Indication: COUGH

REACTIONS (1)
  - COUGH [None]
